FAERS Safety Report 13952296 (Version 1)
Quarter: 2017Q3

REPORT INFORMATION
  Report Type: Spontaneous
  Country: US (occurrence: US)
  Receive Date: 20170911
  Receipt Date: 20170911
  Transmission Date: 20171128
  Serious: No
  Sender: FDA-Public Use
  Company Number: US-TEVA-694715USA

PATIENT
  Sex: Female

DRUGS (10)
  1. FENTANYL. [Suspect]
     Active Substance: FENTANYL
     Route: 062
     Dates: start: 201604, end: 201608
  2. KEPPRA [Concomitant]
     Active Substance: LEVETIRACETAM
  3. DULOXETINE. [Concomitant]
     Active Substance: DULOXETINE
  4. CLONIDINE. [Concomitant]
     Active Substance: CLONIDINE
  5. TRAZODONE [Concomitant]
     Active Substance: TRAZODONE HYDROCHLORIDE
     Dosage: 0.5 TAB QHS
  6. FENTANYL. [Suspect]
     Active Substance: FENTANYL
     Indication: PAIN
     Route: 062
     Dates: start: 201509, end: 201604
  7. BACLOFEN. [Concomitant]
     Active Substance: BACLOFEN
  8. ASPIRIN. [Concomitant]
     Active Substance: ASPIRIN
     Dosage: QHS
  9. MELOXICAM. [Concomitant]
     Active Substance: MELOXICAM
  10. TRAZODONE [Concomitant]
     Active Substance: TRAZODONE HYDROCHLORIDE
     Dosage: 5-255 1 TAB QD PRN

REACTIONS (5)
  - Chemical burn [Recovered/Resolved]
  - Application site pruritus [Unknown]
  - Drug hypersensitivity [Unknown]
  - Burning sensation [Unknown]
  - Blister [Unknown]
